FAERS Safety Report 5323309-6 (Version None)
Quarter: 2007Q1

REPORT INFORMATION
  Report Type: 
  Country: None (occurrence: None)
  Receive Date: 20070221
  Receipt Date: 20061129
  Transmission Date: 20070707
  Serious: Yes (Hospitalization)
  Sender: FDA-Public Use
  Company Number: BDI-008853

PATIENT
  Sex: Male
  Weight: 82 kg

DRUGS (8)
  1. ISOVUE-M 200 [Suspect]
     Indication: PAIN
     Dosage: 20 ML ONCE IT
     Dates: start: 20061106, end: 20061106
  2. ISOVUE-M 200 [Suspect]
     Indication: SPINAL MYELOGRAM
     Dosage: 20 ML ONCE IT
     Dates: start: 20061106, end: 20061106
  3. CELEBREX [Concomitant]
  4. ASPIRIN [Concomitant]
  5. NEURONTIN [Concomitant]
  6. ATENOLOL [Concomitant]
  7. ACCUPRIL [Concomitant]
  8. LIPITOR /01326101/ [Concomitant]

REACTIONS (1)
  - CONVULSION [None]
